FAERS Safety Report 16663737 (Version 3)
Quarter: 2019Q3

REPORT INFORMATION
  Report Type: Spontaneous
  Country: JP (occurrence: JP)
  Receive Date: 20190802
  Receipt Date: 20190910
  Transmission Date: 20191004
  Serious: Yes (Death, Hospitalization)
  Sender: FDA-Public Use
  Company Number: JP-ASTRAZENECA-2019SE79716

PATIENT
  Age: 28689 Day
  Sex: Female

DRUGS (15)
  1. DENOSINE [GANCICLOVIR] [Suspect]
     Active Substance: GANCICLOVIR
     Indication: PNEUMONIA
     Route: 041
     Dates: start: 20190524, end: 20190526
  2. LOXOPROFEN [Concomitant]
     Active Substance: LOXOPROFEN
     Indication: FRACTURE
     Dosage: 60.0MG AS REQUIRED
     Dates: start: 20190419, end: 20190419
  3. TAGRISSO [Suspect]
     Active Substance: OSIMERTINIB
     Indication: NON-SMALL CELL LUNG CANCER
     Route: 048
     Dates: start: 20190508, end: 20190520
  4. MAGMITT [Suspect]
     Active Substance: MAGNESIUM OXIDE
     Indication: CONSTIPATION
     Route: 048
     Dates: start: 20190423, end: 20190511
  5. NOVAMIN (PROCHLORPERAZINE MALEATE) [Concomitant]
     Active Substance: PROCHLORPERAZINE MALEATE
     Indication: NAUSEA
     Dates: start: 20190418, end: 20190527
  6. SENNOSIDE [Concomitant]
     Active Substance: SENNOSIDES
     Indication: CONSTIPATION
     Dosage: 24.0MG AS REQUIRED
     Dates: start: 20190421, end: 20190421
  7. CALONAL [Concomitant]
     Active Substance: ACETAMINOPHEN
     Indication: FRACTURE
     Dates: start: 20190421, end: 20190427
  8. FIRSTCIN [Suspect]
     Active Substance: CEFOZOPRAN HYDROCHLORIDE
     Indication: PNEUMONIA
     Route: 041
     Dates: start: 20190520, end: 20190527
  9. NEXIUM [Concomitant]
     Active Substance: ESOMEPRAZOLE MAGNESIUM
     Indication: OESOPHAGITIS
     Route: 048
     Dates: start: 20190512, end: 20190527
  10. TRAMACET [Concomitant]
     Active Substance: ACETAMINOPHEN\TRAMADOL
     Indication: FRACTURE
     Dates: start: 20190418, end: 20190527
  11. ARGAMATE [Concomitant]
     Active Substance: CALCIUM POLYSTYRENE SULFONATE
     Indication: HYPERLIPIDAEMIA
     Dates: start: 20190419, end: 20190421
  12. BETANIS [Concomitant]
     Active Substance: MIRABEGRON
     Indication: POLLAKIURIA
     Dates: start: 20190424, end: 20190514
  13. PRUTETUCIN [Suspect]
     Active Substance: AMIKACIN SULFATE
     Route: 065
  14. YOKUKANSAN [Concomitant]
     Active Substance: HERBALS
     Indication: DELIRIUM
     Dates: start: 20190418, end: 20190527
  15. MALFA [Concomitant]
     Active Substance: ALUMINUM HYDROXIDE\MAGNESIUM HYDROXIDE
     Indication: OESOPHAGITIS
     Dates: start: 20190506, end: 20190527

REACTIONS (5)
  - Interstitial lung disease [Fatal]
  - Lung neoplasm malignant [Fatal]
  - Pneumonia bacterial [Fatal]
  - Diarrhoea [Recovering/Resolving]
  - Pneumonia cytomegaloviral [Fatal]

NARRATIVE: CASE EVENT DATE: 20190511
